FAERS Safety Report 19182155 (Version 3)
Quarter: 2024Q3

REPORT INFORMATION
  Report Type: Spontaneous
  Country: JP (occurrence: JP)
  Receive Date: 20210427
  Receipt Date: 20240830
  Transmission Date: 20241017
  Serious: Yes (Hospitalization)
  Sender: TAKEDA
  Company Number: JP-TAKEDA-2021TJP019633

PATIENT
  Age: 77 Year
  Sex: Female

DRUGS (1)
  1. AGRYLIN [Suspect]
     Active Substance: ANAGRELIDE HYDROCHLORIDE
     Indication: Essential thrombocythaemia
     Dosage: 0.5 MILLIGRAM, QD
     Route: 048

REACTIONS (2)
  - Rehabilitation therapy [Unknown]
  - Product use issue [Unknown]

NARRATIVE: CASE EVENT DATE: 20210423
